FAERS Safety Report 9011099 (Version 2)
Quarter: 2013Q1

REPORT INFORMATION
  Report Type: Spontaneous
  Country: AR (occurrence: AR)
  Receive Date: 20130109
  Receipt Date: 20130123
  Transmission Date: 20140127
  Serious: Yes (Hospitalization)
  Sender: FDA-Public Use
  Company Number: AR-BRISTOL-MYERS SQUIBB COMPANY-17267709

PATIENT
  Age: 65 Year
  Sex: Male
  Weight: 96 kg

DRUGS (4)
  1. NULOJIX [Suspect]
     Indication: RENAL TRANSPLANT
  2. MYFORTIC [Suspect]
     Indication: RENAL TRANSPLANT
  3. BASILIXIMAB [Suspect]
     Indication: RENAL TRANSPLANT
  4. VALGANCICLOVIR [Concomitant]
     Indication: PROPHYLAXIS

REACTIONS (2)
  - Guillain-Barre syndrome [Recovering/Resolving]
  - Gastroenteritis [Recovering/Resolving]
